FAERS Safety Report 11823708 (Version 1)
Quarter: 2015Q4

REPORT INFORMATION
  Report Type: Spontaneous
  Country: CH (occurrence: CH)
  Receive Date: 20151210
  Receipt Date: 20151210
  Transmission Date: 20160305
  Serious: Yes (Hospitalization)
  Sender: FDA-Public Use
  Company Number: CH-JNJFOC-20151203163

PATIENT
  Age: 25 Year
  Sex: Female
  Weight: 59 kg

DRUGS (6)
  1. CALCIUM CARBONATE W/COLECALCIFEROL [Concomitant]
     Active Substance: CALCIUM CARBONATE\CHOLECALCIFEROL
     Indication: OSTEOPOROSIS PROPHYLAXIS
     Route: 048
  2. REMICADE [Suspect]
     Active Substance: INFLIXIMAB
     Indication: CROHN^S DISEASE
     Route: 042
     Dates: start: 20150902, end: 20150902
  3. ACIDUM FOLICUM [Concomitant]
     Active Substance: FOLIC ACID
     Indication: ANAEMIA
     Route: 048
  4. FERRIC HYDROXIDE POLYMALTOSE COMPLEX [Concomitant]
     Indication: ANAEMIA
     Route: 048
  5. AZATHIOPRINE. [Concomitant]
     Active Substance: AZATHIOPRINE
     Indication: CROHN^S DISEASE
     Dosage: ALSO REPORTED AS 20-OCT-2015
     Route: 048
     Dates: start: 20150820
  6. REMICADE [Suspect]
     Active Substance: INFLIXIMAB
     Indication: CROHN^S DISEASE
     Dosage: TWO INFUSIONS
     Route: 042
     Dates: start: 20150820

REACTIONS (7)
  - Hypertension [Unknown]
  - Hypoalbuminaemia [Unknown]
  - Cardiac failure [Recovering/Resolving]
  - Blood creatinine increased [Recovering/Resolving]
  - Cardiomyopathy [Recovering/Resolving]
  - Ejection fraction decreased [Recovering/Resolving]
  - Brain natriuretic peptide increased [Unknown]

NARRATIVE: CASE EVENT DATE: 201509
